FAERS Safety Report 22362103 (Version 1)
Quarter: 2023Q2

REPORT INFORMATION
  Report Type: Spontaneous
  Country: US (occurrence: US)
  Receive Date: 20230524
  Receipt Date: 20230524
  Transmission Date: 20230722
  Serious: Yes (Other)
  Sender: FDA-Public Use
  Company Number: US-Blueprint Medicines Corporation-SP-US-2023-000833

PATIENT
  Age: 64 Year
  Sex: Female

DRUGS (1)
  1. AYVAKIT [Suspect]
     Active Substance: AVAPRITINIB
     Indication: Systemic mastocytosis
     Route: 065

REACTIONS (7)
  - Septic shock [Unknown]
  - Pseudomonal bacteraemia [Unknown]
  - Cytomegalovirus infection [Unknown]
  - Eye infection [Unknown]
  - Toxoplasmosis [Unknown]
  - COVID-19 [Unknown]
  - Off label use [Unknown]
